FAERS Safety Report 7685361-2 (Version None)
Quarter: 2011Q3

REPORT INFORMATION
  Report Type: 
  Country: None (occurrence: None)
  Receive Date: 20110815
  Receipt Date: 20110815
  Transmission Date: 20111222
  Serious: Yes (Death)
  Sender: FDA-Public Use
  Company Number: None

PATIENT
  Age: 77 Year
  Sex: Female
  Weight: 64 kg

DRUGS (2)
  1. MORPHINE [Suspect]
     Dosage: 325 - 1,000 MG. MS04 3 MONTHS AT ONE TIME SUBCUTANEOUS 057 + INTRAVENOUS 042;
     Route: 058
     Dates: start: 20040517
  2. VERSED [Suspect]
     Dosage: 33 MG VERSED 20MG., 3 MG., 10 MG. INTRAVENOUS 042
     Route: 042
     Dates: start: 20040517

REACTIONS (2)
  - INCORRECT DOSE ADMINISTERED [None]
  - INCORRECT ROUTE OF DRUG ADMINISTRATION [None]
